FAERS Safety Report 14089240 (Version 1)
Quarter: 2017Q4

REPORT INFORMATION
  Report Type: Other
  Country: DE (occurrence: DE)
  Receive Date: 20171014
  Receipt Date: 20171014
  Transmission Date: 20180321
  Serious: Yes (Hospitalization)
  Sender: FDA-Public Use
  Company Number: DE-GLENMARK PHARMACEUTICALS-2017GMK029170

PATIENT

DRUGS (8)
  1. HYDROCORTISON                      /00028601/ [Concomitant]
     Active Substance: HYDROCORTISONE
     Indication: PRODUCT USED FOR UNKNOWN INDICATION
     Dosage: 5-2.5-2.5 MG, TID
     Route: 065
  2. L-THYROXIN [Concomitant]
     Active Substance: LEVOTHYROXINE SODIUM
     Indication: PRODUCT USED FOR UNKNOWN INDICATION
     Dosage: 50 ?G, OD
     Route: 065
  3. TOPIRAMAT [Suspect]
     Active Substance: TOPIRAMATE
     Indication: EPILEPSY
     Dosage: 60 MG, BID
     Route: 048
  4. SULTIAME [Concomitant]
     Active Substance: SULTHIAME
     Indication: EPILEPSY
     Dosage: 100 MG, BID
     Route: 048
  5. CIRCADIN [Concomitant]
     Active Substance: MELATONIN
     Indication: PRODUCT USED FOR UNKNOWN INDICATION
     Dosage: 6 MG, OD
     Route: 065
  6. VALPROINSAEURE [Concomitant]
     Active Substance: VALPROIC ACID
     Indication: EPILEPSY
     Dosage: 475-0-600 MG, BID
     Route: 048
  7. CLOBAZAM [Concomitant]
     Active Substance: CLOBAZAM
     Indication: EPILEPSY
     Dosage: 3-0-8 MG, BID
     Route: 048
  8. SALBUTAMOL [Concomitant]
     Active Substance: ALBUTEROL
     Indication: EPILEPSY
     Dosage: 1 DF, QID (4 DF EVERY 2 DAYS)
     Route: 065

REACTIONS (2)
  - Epilepsy [Recovered/Resolved]
  - Disturbance in attention [Recovered/Resolved]

NARRATIVE: CASE EVENT DATE: 20160703
